FAERS Safety Report 24861949 (Version 2)
Quarter: 2025Q1

REPORT INFORMATION
  Report Type: Spontaneous
  Country: JP (occurrence: JP)
  Receive Date: 20250120
  Receipt Date: 20250204
  Transmission Date: 20250408
  Serious: Yes (Death, Hospitalization, Other)
  Sender: TAKEDA
  Company Number: JP-TAKEDA-2024TJP018294

PATIENT
  Age: 7 Decade
  Sex: Male

DRUGS (1)
  1. FRUZAQLA [Suspect]
     Active Substance: FRUQUINTINIB
     Indication: Colorectal cancer
     Dosage: 5 MILLIGRAM, QD
     Dates: start: 20241127, end: 20241216

REACTIONS (3)
  - Decreased appetite [Fatal]
  - Platelet count decreased [Fatal]
  - Colorectal cancer [Fatal]

NARRATIVE: CASE EVENT DATE: 20241216
